FAERS Safety Report 8592638-5 (Version None)
Quarter: 2012Q3

REPORT INFORMATION
  Report Type: 
  Country: None (occurrence: None)
  Receive Date: 20120814
  Receipt Date: 20120807
  Transmission Date: 20120928
  Serious: Yes (Death)
  Sender: FDA-Public Use
  Company Number: MA-ELI_LILLY_AND_COMPANY-MA201208002648

PATIENT
  Age: 47 Year
  Sex: Female

DRUGS (4)
  1. VITAMINS NOS [Concomitant]
     Indication: SUPPLEMENTATION THERAPY
  2. CISPLATIN [Concomitant]
  3. CORTICOSTEROID NOS [Concomitant]
  4. ALIMTA [Suspect]
     Dosage: UNK UNK, SINGLE
     Route: 042

REACTIONS (2)
  - SEPSIS [None]
  - RASH GENERALISED [None]
